FAERS Safety Report 5702800-4 (Version None)
Quarter: 2008Q2

REPORT INFORMATION
  Report Type: 
  Country: None (occurrence: None)
  Receive Date: 20080411
  Receipt Date: 20080403
  Transmission Date: 20081010
  Serious: Yes (Disabling, Other)
  Sender: FDA-Public Use
  Company Number: US-ELI_LILLY_AND_COMPANY-US200804001407

PATIENT
  Sex: Female

DRUGS (7)
  1. HUMALOG [Suspect]
     Indication: DIABETES MELLITUS
     Dates: start: 20030101
  2. HUMULIN N [Suspect]
     Indication: DIABETES MELLITUS
     Dates: start: 19800101
  3. LOVASTATIN [Concomitant]
  4. TEMAZEPAM [Concomitant]
  5. LORAZEPAM [Concomitant]
  6. DIOVAN HCT [Concomitant]
  7. HYZAAR [Concomitant]

REACTIONS (4)
  - BACK DISORDER [None]
  - BACK PAIN [None]
  - KNEE ARTHROPLASTY [None]
  - SURGERY [None]
